FAERS Safety Report 5674013-6 (Version None)
Quarter: 2008Q1

REPORT INFORMATION
  Report Type: 
  Country: None (occurrence: None)
  Receive Date: 20080320
  Receipt Date: 20080310
  Transmission Date: 20080703
  Serious: Yes (Hospitalization)
  Sender: FDA-Public Use
  Company Number: JP-JNJFOC-20080201113

PATIENT
  Sex: Female
  Weight: 38 kg

DRUGS (26)
  1. REMICADE [Suspect]
     Route: 042
  2. REMICADE [Suspect]
     Dosage: 10 DOSES ON UNKNOWN DATES
     Route: 042
  3. REMICADE [Suspect]
     Dosage: 10 DOSES ON UNKNOWN DATES
     Route: 042
  4. REMICADE [Suspect]
     Dosage: 10 DOSES ON UNKNOWN DATES
     Route: 042
  5. REMICADE [Suspect]
     Dosage: 10 DOSES ON UNKNOWN DATES
     Route: 042
  6. REMICADE [Suspect]
     Dosage: 10 DOSES ON UNKNOWN DATES
     Route: 042
  7. REMICADE [Suspect]
     Dosage: 10 DOSES ON UNKNOWN DATES
     Route: 042
  8. REMICADE [Suspect]
     Dosage: 10 DOSES ON UNKNOWN DATES
     Route: 042
  9. REMICADE [Suspect]
     Dosage: 10 DOSES ON UNKNOWN DATES
     Route: 042
  10. REMICADE [Suspect]
     Dosage: 10 DOSES ON UNKNOWN DATES
     Route: 042
  11. REMICADE [Suspect]
     Dosage: 10 DOSES ON UNKNOWN DATES
     Route: 042
  12. REMICADE [Suspect]
     Indication: RHEUMATOID ARTHRITIS
     Route: 042
  13. RHEUMATREX [Concomitant]
     Indication: RHEUMATOID ARTHRITIS
     Route: 048
  14. AZULFIDINE EN-TABS [Concomitant]
     Indication: RHEUMATOID ARTHRITIS
     Route: 048
  15. RIMATIL [Concomitant]
     Indication: RHEUMATOID ARTHRITIS
     Route: 048
  16. THIOLA [Concomitant]
     Route: 048
  17. ADRENAL HORMONE PREPARATION [Concomitant]
  18. ANTI-TUBERCULOUS AGENTS [Concomitant]
  19. BONALON [Concomitant]
     Indication: OSTEOPOROSIS
     Route: 048
  20. TAKEPRON [Concomitant]
     Indication: REFLUX OESOPHAGITIS
     Route: 048
  21. ULGUT [Concomitant]
     Indication: GASTRITIS
     Route: 048
  22. LOXONIN [Concomitant]
     Indication: OSTEOARTHRITIS
     Route: 048
  23. URSO 250 [Concomitant]
     Indication: CHRONIC HEPATITIS
     Route: 048
  24. PREDONINE [Concomitant]
     Indication: RHEUMATOID ARTHRITIS
     Route: 048
  25. ALFAROL [Concomitant]
     Indication: OSTEOPOROSIS
     Route: 048
  26. CYANOCOBALAMIN [Concomitant]
     Indication: NEUROPATHY PERIPHERAL
     Route: 048

REACTIONS (1)
  - PULMONARY TUBERCULOSIS [None]
